FAERS Safety Report 4541528-3 (Version None)
Quarter: 2004Q4

REPORT INFORMATION
  Report Type: 
  Country: None (occurrence: None)
  Receive Date: 20041227
  Receipt Date: 20041221
  Transmission Date: 20050328
  Serious: Yes (Other)
  Sender: FDA-Public Use
  Company Number: 2004-12-1145

PATIENT
  Sex: Male

DRUGS (2)
  1. SALBUTAMOL (ALBUTEROL) ORAL AEROSOL    LIKE PROVENTIL HFA [Suspect]
     Dosage: ORAL AER INH
     Route: 055
  2. BECOTIDE ORAL AEROSOL [Suspect]
     Dosage: OFRAL AER INH
     Route: 055

REACTIONS (3)
  - CONFUSIONAL STATE [None]
  - HYPERSENSITIVITY [None]
  - LOSS OF CONSCIOUSNESS [None]
